FAERS Safety Report 18582728 (Version 1)
Quarter: 2020Q4

REPORT INFORMATION
  Report Type: Spontaneous
  Country: US (occurrence: US)
  Receive Date: 20201205
  Receipt Date: 20201205
  Transmission Date: 20210114
  Serious: No
  Sender: FDA-Public Use
  Company Number: US-JNJFOC-20201204827

PATIENT
  Sex: Female

DRUGS (1)
  1. XARELTO [Suspect]
     Active Substance: RIVAROXABAN
     Indication: CONGENITAL ANOMALY
     Route: 048

REACTIONS (4)
  - Malaise [Unknown]
  - Speech disorder [Unknown]
  - Treatment noncompliance [Unknown]
  - Dizziness [Unknown]
